FAERS Safety Report 22160958 (Version 1)
Quarter: 2023Q1

REPORT INFORMATION
  Report Type: Spontaneous
  Country: US (occurrence: None)
  Receive Date: 20230331
  Receipt Date: 20230331
  Transmission Date: 20230417
  Serious: Yes (Death)
  Sender: FDA-Public Use
  Company Number: None

PATIENT
  Age: 55 Year
  Sex: Female
  Weight: 74 kg

DRUGS (12)
  1. NIRAPARIB [Suspect]
     Active Substance: NIRAPARIB
     Indication: Breast cancer metastatic
     Dosage: 200 MG DAILY OAL
     Route: 048
     Dates: start: 20220915, end: 20220928
  2. DOSTARLIMAB [Suspect]
     Active Substance: DOSTARLIMAB
     Indication: Breast cancer metastatic
     Dosage: 500 MG EVERY 3 WEEKS INTRAVENOUS?
     Route: 042
     Dates: start: 20220915, end: 20220915
  3. OXYCODONE [Concomitant]
     Active Substance: OXYCODONE
     Dates: start: 20220826
  4. Vitamin D 25mg Daily [Concomitant]
  5. Vitamin B12 5000mcg Daily [Concomitant]
  6. Folate/Folic acid 800mg Daily [Concomitant]
  7. Calcium 1500mg Daily [Concomitant]
  8. Magnesium 500mg [Concomitant]
  9. Compazine 10mg PRN [Concomitant]
     Dates: start: 20220915
  10. Zofran 8mg PRN [Concomitant]
     Dates: start: 20220915
  11. Wellbutrin 150mg Daily [Concomitant]
  12. Prozac 20mg Daily [Concomitant]

REACTIONS (6)
  - Anaemia [None]
  - Hyponatraemia [None]
  - Hypocalcaemia [None]
  - Hepatic failure [None]
  - Blood creatine phosphokinase increased [None]
  - Blood thyroid stimulating hormone increased [None]

NARRATIVE: CASE EVENT DATE: 20221024
